FAERS Safety Report 17689176 (Version 26)
Quarter: 2025Q1

REPORT INFORMATION
  Report Type: Report from Study
  Country: US (occurrence: US)
  Receive Date: 20200421
  Receipt Date: 20250306
  Transmission Date: 20250408
  Serious: Yes (Hospitalization, Other)
  Sender: TAKEDA
  Company Number: US-SHIRE-US202014037

PATIENT
  Age: 83 Year
  Sex: Female
  Weight: 61 kg

DRUGS (55)
  1. HUMAN IMMUNOGLOBULIN G\HYALURONIDASE RECOMBINANT HUMAN [Suspect]
     Active Substance: HUMAN IMMUNOGLOBULIN G\HYALURONIDASE (HUMAN RECOMBINANT)
     Indication: Immunodeficiency common variable
     Dosage: 30 GRAM, Q4WEEKS
     Dates: start: 20180503
  2. HUMAN IMMUNOGLOBULIN G\HYALURONIDASE RECOMBINANT HUMAN [Suspect]
     Active Substance: HUMAN IMMUNOGLOBULIN G\HYALURONIDASE (HUMAN RECOMBINANT)
     Dosage: 30 GRAM, Q4WEEKS
     Dates: start: 20180918
  3. HUMAN IMMUNOGLOBULIN G\HYALURONIDASE RECOMBINANT HUMAN [Suspect]
     Active Substance: HUMAN IMMUNOGLOBULIN G\HYALURONIDASE (HUMAN RECOMBINANT)
     Dosage: 30 GRAM, Q4WEEKS
     Dates: start: 20180919
  4. HUMAN IMMUNOGLOBULIN G\HYALURONIDASE RECOMBINANT HUMAN [Suspect]
     Active Substance: HUMAN IMMUNOGLOBULIN G\HYALURONIDASE (HUMAN RECOMBINANT)
     Dosage: 30 GRAM, Q4WEEKS
     Dates: start: 20180920
  5. HUMAN IMMUNOGLOBULIN G\HYALURONIDASE RECOMBINANT HUMAN [Suspect]
     Active Substance: HUMAN IMMUNOGLOBULIN G\HYALURONIDASE (HUMAN RECOMBINANT)
     Dosage: 35 GRAM, Q4WEEKS
  6. HUMAN IMMUNOGLOBULIN G\HYALURONIDASE RECOMBINANT HUMAN [Suspect]
     Active Substance: HUMAN IMMUNOGLOBULIN G\HYALURONIDASE (HUMAN RECOMBINANT)
  7. HUMAN IMMUNOGLOBULIN G\HYALURONIDASE RECOMBINANT HUMAN [Suspect]
     Active Substance: HUMAN IMMUNOGLOBULIN G\HYALURONIDASE (HUMAN RECOMBINANT)
     Dosage: 40 GRAM, Q4WEEKS
  8. ACETAMINOPHEN [Concomitant]
     Active Substance: ACETAMINOPHEN
  9. SODIUM CHLORIDE [Concomitant]
     Active Substance: SODIUM CHLORIDE
  10. EPINEPHRINE [Concomitant]
     Active Substance: EPINEPHRINE
  11. FLOVENT HFA [Concomitant]
     Active Substance: FLUTICASONE PROPIONATE
  12. ZYRTEC [Concomitant]
     Active Substance: CETIRIZINE HYDROCHLORIDE
  13. DICYCLOMINE HYDROCHLORIDE [Concomitant]
     Active Substance: DICYCLOMINE HYDROCHLORIDE
  14. LEVOTHYROXINE SODIUM [Concomitant]
     Active Substance: LEVOTHYROXINE SODIUM
  15. WARFARIN [Concomitant]
     Active Substance: WARFARIN
  16. ACETAMINOPHEN\HYDROCODONE [Concomitant]
     Active Substance: ACETAMINOPHEN\HYDROCODONE
  17. PANTOPRAZOLE SODIUM [Concomitant]
     Active Substance: PANTOPRAZOLE SODIUM
  18. LINZESS [Concomitant]
     Active Substance: LINACLOTIDE
  19. BREO ELLIPTA [Concomitant]
     Active Substance: FLUTICASONE FUROATE\VILANTEROL TRIFENATATE
  20. FLUTICASONE PROPIONATE [Concomitant]
     Active Substance: FLUTICASONE PROPIONATE
  21. PROAIR HFA [Concomitant]
     Active Substance: ALBUTEROL SULFATE
  22. PREDNISONE [Concomitant]
     Active Substance: PREDNISONE
  23. DUPIXENT [Concomitant]
     Active Substance: DUPILUMAB
  24. METFORMIN HYDROCHLORIDE [Concomitant]
     Active Substance: METFORMIN HYDROCHLORIDE
  25. BENADRYL ALLERGY [Concomitant]
     Active Substance: DIPHENHYDRAMINE HYDROCHLORIDE
  26. CALCIUM [Concomitant]
     Active Substance: CALCIUM
  27. ALPRAZOLAM [Concomitant]
     Active Substance: ALPRAZOLAM
  28. DIPHENHYDRAMINE HYDROCHLORIDE [Concomitant]
     Active Substance: DIPHENHYDRAMINE HYDROCHLORIDE
  29. Lmx [Concomitant]
  30. MONTELUKAST SODIUM [Concomitant]
     Active Substance: MONTELUKAST SODIUM
  31. METOPROLOL TARTRATE [Concomitant]
     Active Substance: METOPROLOL TARTRATE
  32. FERROUS SULFATE [Concomitant]
     Active Substance: FERROUS SULFATE
  33. METRONIDAZOLE [Concomitant]
     Active Substance: METRONIDAZOLE
  34. VITAMIN D3 [Concomitant]
     Active Substance: CHOLECALCIFEROL
  35. POTASSIUM CHLORIDE [Concomitant]
     Active Substance: POTASSIUM CHLORIDE
  36. GABAPENTIN [Concomitant]
     Active Substance: GABAPENTIN
  37. HYDROCHLOROTHIAZIDE\LISINOPRIL [Concomitant]
     Active Substance: HYDROCHLOROTHIAZIDE\LISINOPRIL
  38. NYSTATIN [Concomitant]
     Active Substance: NYSTATIN
  39. DIPHENHYDRAMINE [Concomitant]
     Active Substance: DIPHENHYDRAMINE
  40. METFORMIN [Concomitant]
     Active Substance: METFORMIN HYDROCHLORIDE
  41. SUCRALFATE [Concomitant]
     Active Substance: SUCRALFATE
  42. FISH OIL [Concomitant]
     Active Substance: FISH OIL
  43. BENZONATATE [Concomitant]
     Active Substance: BENZONATATE
  44. QVAR [Concomitant]
     Active Substance: BECLOMETHASONE DIPROPIONATE
  45. MONTELUKAST [Concomitant]
     Active Substance: MONTELUKAST
  46. PANTOPRAZOLE [Concomitant]
     Active Substance: PANTOPRAZOLE
  47. FLUTICASONE [Concomitant]
     Active Substance: FLUTICASONE
  48. LEVOTHYROXINE [Concomitant]
     Active Substance: LEVOTHYROXINE
  49. VITAMIN D2 [Concomitant]
     Active Substance: ERGOCALCIFEROL
  50. VITAMIN D [Concomitant]
     Active Substance: VITAMIN D NOS
  51. WARFARIN SODIUM [Concomitant]
     Active Substance: WARFARIN SODIUM
  52. SPIRIVA [Concomitant]
     Active Substance: TIOTROPIUM BROMIDE MONOHYDRATE
  53. CURCUMIN [Concomitant]
     Active Substance: CURCUMIN
  54. ARNUITY ELLIPTA [Concomitant]
     Active Substance: FLUTICASONE FUROATE
  55. FUROSEMIDE [Concomitant]
     Active Substance: FUROSEMIDE

REACTIONS (28)
  - Pneumonia [Unknown]
  - Influenza [Unknown]
  - Croup infectious [Unknown]
  - Humerus fracture [Unknown]
  - Syncope [Unknown]
  - Cardiac failure congestive [Unknown]
  - Pain in extremity [Unknown]
  - Fall [Unknown]
  - Bronchitis [Not Recovered/Not Resolved]
  - Lung disorder [Not Recovered/Not Resolved]
  - Seasonal allergy [Unknown]
  - Respiratory tract congestion [Unknown]
  - Arthritis [Unknown]
  - Infusion site discharge [Unknown]
  - Upper limb fracture [Unknown]
  - Head injury [Unknown]
  - Sinusitis [Unknown]
  - Product use complaint [Unknown]
  - Product dose omission issue [Unknown]
  - Nasopharyngitis [Unknown]
  - Chest discomfort [Unknown]
  - Chest pain [Unknown]
  - Asthenia [Unknown]
  - Diarrhoea [Recovered/Resolved]
  - Hyperhidrosis [Recovered/Resolved]
  - Nausea [Recovered/Resolved]
  - Vomiting [Recovered/Resolved]
  - Dyspnoea [Unknown]

NARRATIVE: CASE EVENT DATE: 20240529
